FAERS Safety Report 6698332-X (Version None)
Quarter: 2010Q2

REPORT INFORMATION
  Report Type: 
  Country: None (occurrence: None)
  Receive Date: 20100426
  Receipt Date: 20100426
  Transmission Date: 20101027
  Serious: Yes (Other)
  Sender: FDA-Public Use
  Company Number: None

PATIENT
  Age: 49 Year
  Sex: Male
  Weight: 77.1115 kg

DRUGS (2)
  1. VENLAFAXINE HCL EXTENDED-RELEASE [Suspect]
     Indication: ANXIETY
     Dosage: 1 TAB PER DAY PO
     Route: 048
     Dates: start: 20091123, end: 20091207
  2. VENLAFAXINE HCL [Suspect]
     Dosage: 1 TAB PER DAY PO
     Route: 048
     Dates: start: 20091208, end: 20091222

REACTIONS (5)
  - INSOMNIA [None]
  - LETHARGY [None]
  - PRODUCT SUBSTITUTION ISSUE [None]
  - RASH PRURITIC [None]
  - URTICARIA [None]
